FAERS Safety Report 10048614 (Version 1)
Quarter: 2014Q1

REPORT INFORMATION
  Report Type: Spontaneous
  Country: GB (occurrence: GB)
  Receive Date: 20140331
  Receipt Date: 20140331
  Transmission Date: 20141002
  Serious: Yes (Other)
  Sender: FDA-Public Use
  Company Number: GB-WATSON-2014-05754

PATIENT
  Age: 29 Year
  Sex: Female
  Weight: 55 kg

DRUGS (2)
  1. OMEPRAZOLE (UNKNOWN) [Suspect]
     Indication: GASTROOESOPHAGEAL REFLUX DISEASE
     Dosage: 20 MG, UNK
     Route: 048
     Dates: start: 201311, end: 201402
  2. MEBEVERINE [Concomitant]
     Indication: PRODUCT USED FOR UNKNOWN INDICATION
     Dosage: UNK
     Route: 065

REACTIONS (4)
  - Depression [Recovered/Resolved]
  - Vision blurred [Recovering/Resolving]
  - Paraesthesia [Recovered/Resolved]
  - Night sweats [Recovered/Resolved]
